FAERS Safety Report 4367401-1 (Version None)
Quarter: 2004Q2

REPORT INFORMATION
  Report Type: 
  Country: None (occurrence: None)
  Receive Date: 20040528
  Receipt Date: 20040528
  Transmission Date: 20050107
  Serious: Yes (Other)
  Sender: FDA-Public Use
  Company Number: None

PATIENT
  Sex: Female
  Weight: 54.4316 kg

DRUGS (9)
  1. FOSAMAX [Suspect]
     Indication: OSTEOPOROSIS
     Dosage: ONE PILL WEEKLY ORAL
     Route: 048
     Dates: start: 19900101, end: 20021105
  2. OCUVITE [Concomitant]
  3. IRON [Concomitant]
  4. MULTIVITAMIN [Concomitant]
  5. ESTRACE [Concomitant]
  6. AYGESTIN [Concomitant]
  7. VIOXX [Concomitant]
  8. ECOTRIN [Concomitant]
  9. ZANTAC [Concomitant]

REACTIONS (1)
  - AGEUSIA [None]
